FAERS Safety Report 19076555 (Version 2)
Quarter: 2021Q2

REPORT INFORMATION
  Report Type: Spontaneous
  Country: US (occurrence: US)
  Receive Date: 20210331
  Receipt Date: 20210405
  Transmission Date: 20210717
  Serious: No
  Sender: FDA-Public Use
  Company Number: US-TEVA-2021-US-1889516

PATIENT
  Sex: Female
  Weight: 75 kg

DRUGS (1)
  1. AUSTEDO [Suspect]
     Active Substance: DEUTETRABENAZINE
     Indication: TARDIVE DYSKINESIA
     Dosage: 36 MILLIGRAM DAILY;
     Route: 048

REACTIONS (4)
  - Oral pain [Unknown]
  - Muscle twitching [Unknown]
  - Product supply issue [Unknown]
  - Dyskinesia [Unknown]
